FAERS Safety Report 9520824 (Version 1)
Quarter: 2013Q3

REPORT INFORMATION
  Report Type: Spontaneous
  Country: US (occurrence: US)
  Receive Date: 20130913
  Receipt Date: 20130913
  Transmission Date: 20140515
  Serious: Yes (Other)
  Sender: FDA-Public Use
  Company Number: US-TEVA-431420USA

PATIENT
  Age: 44 Year
  Sex: Female
  Weight: 69.46 kg

DRUGS (3)
  1. PARAGARD 380A [Suspect]
     Indication: CONTRACEPTION
     Dates: start: 20120308, end: 20130906
  2. TRAMADOL [Concomitant]
     Indication: NECK PAIN
  3. CYCLOBENZAPRINE [Concomitant]
     Indication: NECK PAIN
     Dosage: PRN
     Route: 048

REACTIONS (3)
  - Device dislocation [Recovered/Resolved]
  - Pelvic pain [Unknown]
  - Vaginal discharge [Unknown]
